FAERS Safety Report 25039016 (Version 2)
Quarter: 2025Q1

REPORT INFORMATION
  Report Type: Report from Study
  Country: DE (occurrence: DE)
  Receive Date: 20250305
  Receipt Date: 20250318
  Transmission Date: 20250409
  Serious: Yes (Death, Hospitalization, Other)
  Sender: JOHNSON AND JOHNSON
  Company Number: DE-JNJFOC-20250306185

PATIENT
  Sex: Female

DRUGS (16)
  1. TRABECTEDIN [Suspect]
     Active Substance: TRABECTEDIN
     Indication: Soft tissue sarcoma
  2. TRABECTEDIN [Suspect]
     Active Substance: TRABECTEDIN
     Dates: start: 20210831
  3. DEXAMETHASONE [Concomitant]
     Active Substance: DEXAMETHASONE
     Dates: start: 20210831
  4. GRANISETRON [Concomitant]
     Active Substance: GRANISETRON
     Dates: start: 20210831
  5. DEXAMETHASONE [Concomitant]
     Active Substance: DEXAMETHASONE
  6. GRANULOCYTE COLONY-STIMULATING FACTOR NOS [Concomitant]
     Active Substance: GRANULOCYTE COLONY-STIMULATING FACTOR NOS
     Dates: start: 20210901
  7. BISOPROLOL [Concomitant]
     Active Substance: BISOPROLOL
  8. CHOLECALCIFEROL [Concomitant]
     Active Substance: CHOLECALCIFEROL
  9. PREGABALIN [Concomitant]
     Active Substance: PREGABALIN
  10. GLANDOMED [Concomitant]
  11. PANTOPRAZOL A [Concomitant]
  12. AMPHO-MORONAL [Concomitant]
     Active Substance: AMPHOTERICIN B
  13. POTASSIUM CITRATE [Concomitant]
     Active Substance: POTASSIUM CITRATE
  14. SODIUM PICOSULFATE [Concomitant]
     Active Substance: SODIUM PICOSULFATE
  15. MCP [Concomitant]
     Active Substance: METOCLOPRAMIDE HYDROCHLORIDE
  16. DIMENHYDRINATE [Concomitant]
     Active Substance: DIMENHYDRINATE

REACTIONS (2)
  - Neutropenic sepsis [Fatal]
  - Pneumonia klebsiella [Unknown]
